FAERS Safety Report 5332219-X (Version None)
Quarter: 2007Q2

REPORT INFORMATION
  Report Type: 
  Country: None (occurrence: None)
  Receive Date: 20070306
  Receipt Date: 20060502
  Transmission Date: 20071010
  Serious: Yes (Other)
  Sender: FDA-Public Use
  Company Number: A03200602808

PATIENT
  Age: 53 Year
  Sex: Female

DRUGS (6)
  1. PLAVIX [Suspect]
     Indication: TRANSIENT ISCHAEMIC ATTACK
     Dosage: 75 MG QD - ORAL
     Route: 048
     Dates: start: 20060425, end: 20060429
  2. POTASSIUM ACETATE [Concomitant]
  3. FLUOXETINE HYDROCHLORIDE [Concomitant]
  4. METHYLDOPA [Concomitant]
  5. PANTOPRAZOLE SODIUM [Concomitant]
  6. CARBAMAZEPINE [Concomitant]

REACTIONS (2)
  - ALLERGIC OEDEMA [None]
  - DYSPNOEA [None]
